FAERS Safety Report 11639604 (Version 5)
Quarter: 2016Q1

REPORT INFORMATION
  Report Type: Report from Study
  Country: US (occurrence: US)
  Receive Date: 20151019
  Receipt Date: 20160106
  Transmission Date: 20160525
  Serious: Yes (Other)
  Sender: FDA-Public Use
  Company Number: US-AMGEN-USASP2015108335

PATIENT
  Age: 53 Year
  Sex: Female

DRUGS (2)
  1. WARFARIN [Concomitant]
     Active Substance: WARFARIN
     Dosage: UNK
  2. ENBREL [Suspect]
     Active Substance: ETANERCEPT
     Indication: ANKYLOSING SPONDYLITIS
     Dosage: UNK UNK, 2 TIMES/WK
     Route: 065
     Dates: start: 20150801

REACTIONS (8)
  - Injection site erythema [Unknown]
  - Rash [Unknown]
  - Injection site swelling [Unknown]
  - Injection site extravasation [Unknown]
  - Device issue [Unknown]
  - Knee arthroplasty [Unknown]
  - Injection site mass [Unknown]
  - Injection site haemorrhage [Unknown]

NARRATIVE: CASE EVENT DATE: 2015
